FAERS Safety Report 9032144 (Version 3)
Quarter: 2013Q1

REPORT INFORMATION
  Report Type: Spontaneous
  Country: US (occurrence: US)
  Receive Date: 20130122
  Receipt Date: 20130227
  Transmission Date: 20140127
  Serious: No
  Sender: FDA-Public Use
  Company Number: US-VERTEX PHARMACEUTICALS INC.-2013-000916

PATIENT
  Age: 52 Year
  Sex: Male
  Weight: 57 kg

DRUGS (5)
  1. INCIVEK [Suspect]
     Indication: HEPATITIS C
     Dosage: 750 MG, TID
     Route: 048
     Dates: start: 20121212
  2. RIBAVIRIN [Suspect]
     Indication: HEPATITIS C
     Dosage: 400 MG, BID
     Dates: start: 20121212, end: 201301
  3. RIBAVIRIN [Suspect]
     Dosage: 200 MG, BID
     Route: 048
     Dates: start: 201301
  4. PEGASYS [Suspect]
     Indication: HEPATITIS C
     Dosage: 180 ?G, QW
     Route: 058
     Dates: start: 20121212, end: 201301
  5. PEGASYS [Suspect]
     Dosage: 90 ?G, QW
     Route: 058
     Dates: start: 201301

REACTIONS (10)
  - Dizziness [Recovered/Resolved]
  - Pyrexia [Not Recovered/Not Resolved]
  - Hypersomnia [Not Recovered/Not Resolved]
  - Oral discomfort [Not Recovered/Not Resolved]
  - Burning sensation [Not Recovered/Not Resolved]
  - Dry skin [Not Recovered/Not Resolved]
  - Rash generalised [Not Recovered/Not Resolved]
  - Platelet count decreased [Not Recovered/Not Resolved]
  - Pruritus [Unknown]
  - Nausea [Recovered/Resolved]
